FAERS Safety Report 8460150-X (Version None)
Quarter: 2012Q2

REPORT INFORMATION
  Report Type: 
  Country: None (occurrence: None)
  Receive Date: 20120622
  Receipt Date: 20120615
  Transmission Date: 20120825
  Serious: Yes (Hospitalization)
  Sender: FDA-Public Use
  Company Number: US-TEVA-337366USA

PATIENT
  Sex: Female
  Weight: 91.708 kg

DRUGS (1)
  1. PARAGARD T 380A [Suspect]
     Indication: CONTRACEPTION
     Route: 015
     Dates: start: 20120402, end: 20120430

REACTIONS (6)
  - PYELONEPHRITIS [None]
  - MUSCLE SPASMS [None]
  - PAIN [None]
  - VAGINAL HAEMORRHAGE [None]
  - DEVICE EXPULSION [None]
  - MENORRHAGIA [None]
